FAERS Safety Report 5969227-1 (Version None)
Quarter: 2008Q4

REPORT INFORMATION
  Report Type: 
  Country: None (occurrence: None)
  Receive Date: 20081126
  Receipt Date: 20080820
  Transmission Date: 20090506
  Serious: No
  Sender: FDA-Public Use
  Company Number: US-ABBOTT-08P-163-0471794-00

PATIENT
  Age: 67 Year
  Sex: Male

DRUGS (6)
  1. SIMCOR [Suspect]
     Indication: DYSLIPIDAEMIA
     Dosage: 500MG/20MG
     Route: 048
     Dates: start: 20080801
  2. AMLODIPINE [Concomitant]
     Indication: DRUG USE FOR UNKNOWN INDICATION
     Route: 048
  3. LISINOPRIL [Concomitant]
     Indication: DRUG USE FOR UNKNOWN INDICATION
     Route: 048
  4. RABEPRAZOLE SODIUM [Concomitant]
     Indication: DRUG USE FOR UNKNOWN INDICATION
     Route: 048
  5. OXAZEPAM [Concomitant]
     Indication: ANXIETY
     Route: 048
  6. OXAZEPAM [Concomitant]
     Indication: PANIC ATTACK

REACTIONS (3)
  - DIZZINESS [None]
  - FEELING ABNORMAL [None]
  - FLUSHING [None]
